FAERS Safety Report 6760473-6 (Version None)
Quarter: 2010Q2

REPORT INFORMATION
  Report Type: 
  Country: None (occurrence: None)
  Receive Date: 20100604
  Receipt Date: 20100524
  Transmission Date: 20101027
  Serious: Yes (Hospitalization)
  Sender: FDA-Public Use
  Company Number: 2010AP001070

PATIENT
  Age: 73 Year
  Sex: Female

DRUGS (8)
  1. OMEPRAZOLE [Suspect]
     Indication: GASTROOESOPHAGEAL REFLUX DISEASE
     Dosage: 40 MG; QD
     Dates: start: 19990101
  2. PANTOPRAZOLE SODIUM [Suspect]
     Dosage: 40 MG; QD
  3. RANITIDINE HYDROCHLORIDE [Suspect]
     Dosage: 150 MG; BID
  4. ESOMEPRAZOLE MAGNESIUM [Suspect]
     Dosage: 20 MG; QD
  5. CIMETIDINE [Suspect]
     Dosage: 400 MG; BID
  6. FUROSEMIDE [Concomitant]
  7. BENDROFLUMETHIAZIDE (BENDROFLUMETHIAZIDE) [Concomitant]
  8. LANSOPRAZOLE [Concomitant]

REACTIONS (17)
  - ABDOMINAL PAIN [None]
  - ARTHRALGIA [None]
  - ASTHENIA [None]
  - BALANCE DISORDER [None]
  - CHEST PAIN [None]
  - CIRCULATORY COLLAPSE [None]
  - DIARRHOEA [None]
  - DYSPEPSIA [None]
  - FALL [None]
  - HYPOCALCAEMIA [None]
  - HYPOMAGNESAEMIA [None]
  - LETHARGY [None]
  - METABOLIC DISORDER [None]
  - MUSCLE SPASMS [None]
  - PARAESTHESIA [None]
  - RASH [None]
  - RASH PRURITIC [None]
